FAERS Safety Report 9378610 (Version 2)
Quarter: 2013Q4

REPORT INFORMATION
  Report Type: Spontaneous
  Country: AR (occurrence: AR)
  Receive Date: 20130702
  Receipt Date: 20131016
  Transmission Date: 20140711
  Serious: Yes (Death, Congenital Anomaly, Other)
  Sender: FDA-Public Use
  Company Number: AR-AMGEN-ARGSP2013046011

PATIENT
  Age: 36 Hour
  Sex: Male

DRUGS (3)
  1. ENBREL [Suspect]
     Indication: PRODUCT USED FOR UNKNOWN INDICATION
     Dosage: 50 MG, WEEKLY
     Route: 064
     Dates: start: 200608
  2. ENBREL [Suspect]
     Dosage: 50 MG, WEEKLY
     Route: 064
     Dates: start: 2011, end: 20121227
  3. DELTISONA B                        /00049601/ [Concomitant]
     Indication: RHEUMATOID ARTHRITIS
     Dosage: 4 MG, UNK
     Route: 048
     Dates: start: 2013

REACTIONS (3)
  - Pulmonary hypertension [Fatal]
  - Maternal exposure before pregnancy [Fatal]
  - Congenital diaphragmatic hernia [Not Recovered/Not Resolved]
